FAERS Safety Report 23660303 (Version 1)
Quarter: 2024Q1

REPORT INFORMATION
  Report Type: Spontaneous
  Country: US (occurrence: US)
  Receive Date: 20240321
  Receipt Date: 20240321
  Transmission Date: 20240410
  Serious: No
  Sender: FDA-Public Use
  Company Number: US-JNJFOC-20240341983

PATIENT
  Age: 75 Year
  Sex: Female

DRUGS (1)
  1. SPRAVATO [Suspect]
     Active Substance: ESKETAMINE
     Indication: Product used for unknown indication
     Dosage: 2 UNITS
     Route: 045

REACTIONS (2)
  - Blood pressure decreased [Recovered/Resolved]
  - Sedation [Recovered/Resolved]
